FAERS Safety Report 11218281 (Version 6)
Quarter: 2015Q4

REPORT INFORMATION
  Report Type: Report from Study
  Country: JP (occurrence: JP)
  Receive Date: 20150625
  Receipt Date: 20151218
  Transmission Date: 20160304
  Serious: Yes (Death, Hospitalization, Other)
  Sender: FDA-Public Use
  Company Number: JP-OTSUKA-2015_002911

PATIENT
  Age: 77 Year
  Sex: Female
  Weight: 47.3 kg

DRUGS (10)
  1. RECOMODULIN [Concomitant]
     Active Substance: THROMBOMODULIN ALFA
     Indication: DISSEMINATED INTRAVASCULAR COAGULATION
  2. KANAMYCIN [Concomitant]
     Active Substance: KANAMYCIN\KANAMYCIN A SULFATE
     Indication: PRODUCT USED FOR UNKNOWN INDICATION
     Dosage: 1000 MG/DAY
     Route: 048
     Dates: start: 20150615, end: 20150812
  3. LAC-B [Concomitant]
     Active Substance: BIFIDOBACTERIUM SPP.
     Indication: PRODUCT USED FOR UNKNOWN INDICATION
     Dosage: 2 DF/DAY
     Route: 048
     Dates: end: 20150812
  4. TAKEPRON [Concomitant]
     Active Substance: LANSOPRAZOLE
     Indication: PRODUCT USED FOR UNKNOWN INDICATION
     Dosage: 15 MG/DAY
     Route: 048
     Dates: end: 20150812
  5. PORTOLAC [Concomitant]
     Active Substance: LACTITOL
     Indication: PRODUCT USED FOR UNKNOWN INDICATION
     Dosage: 6 G/DAY
     Route: 048
     Dates: start: 20150605, end: 20150812
  6. ISOLEUCINE W/LEUCINE/VALINE [Concomitant]
     Active Substance: ISOLEUCINE\LEUCINE\VALINE
     Indication: PRODUCT USED FOR UNKNOWN INDICATION
     Dosage: 12.45 G/DAY
     Route: 048
     Dates: end: 20150812
  7. TOLVAPTAN [Suspect]
     Active Substance: TOLVAPTAN
     Indication: FLUID RETENTION
     Dosage: 3.75 MG, QD (EVERY MORNING)
     Route: 048
     Dates: start: 20150603, end: 20150813
  8. ALBUMIN [Concomitant]
     Active Substance: ALBUMIN (HUMAN)
     Indication: OEDEMA DUE TO HEPATIC DISEASE
     Dosage: 12.5 G/DAY
     Route: 042
     Dates: end: 20150812
  9. BUMINATE [Concomitant]
     Active Substance: ALBUMIN (HUMAN)
     Indication: BLOOD ALBUMIN ABNORMAL
     Dosage: 25 G, DAILY DOSE
     Route: 042
     Dates: start: 20150604, end: 20150604
  10. RECOMODULIN [Concomitant]
     Active Substance: THROMBOMODULIN ALFA
     Indication: DEVICE RELATED SEPSIS
     Dosage: 6.4 KIU, DAILY DOSE
     Route: 042
     Dates: start: 20150605, end: 20150606

REACTIONS (6)
  - Blood albumin abnormal [Recovering/Resolving]
  - Device related sepsis [Recovered/Resolved]
  - Thirst [Not Recovered/Not Resolved]
  - Gastrointestinal haemorrhage [Fatal]
  - Gastrointestinal haemorrhage [Recovering/Resolving]
  - Disseminated intravascular coagulation [Recovered/Resolved]

NARRATIVE: CASE EVENT DATE: 20150604
